FAERS Safety Report 7459675-5 (Version None)
Quarter: 2011Q2

REPORT INFORMATION
  Report Type: 
  Country: None (occurrence: None)
  Receive Date: 20110505
  Receipt Date: 20110422
  Transmission Date: 20111010
  Serious: Yes (Other)
  Sender: FDA-Public Use
  Company Number: US-ELI_LILLY_AND_COMPANY-US201103004846

PATIENT
  Age: 79 Year
  Sex: Female

DRUGS (5)
  1. ASPIRIN [Concomitant]
     Dosage: 81 MG, UNK
  2. FORTEO [Suspect]
     Indication: OSTEOPOROSIS
     Dosage: UNK, UNKNOWN
     Route: 065
     Dates: start: 20090109, end: 20091001
  3. FORTEO [Suspect]
     Dosage: UNK
     Dates: start: 20110310
  4. VITAMIN D [Concomitant]
  5. CALCIUM [Concomitant]

REACTIONS (2)
  - DRUG DOSE OMISSION [None]
  - DUODENAL ULCER PERFORATION [None]
